FAERS Safety Report 8524433-7 (Version None)
Quarter: 2012Q3

REPORT INFORMATION
  Report Type: 
  Country: None (occurrence: None)
  Receive Date: 20120720
  Receipt Date: 20111025
  Transmission Date: 20120928
  Serious: No
  Sender: FDA-Public Use
  Company Number: US-MYLANLABS-2011S1022244

PATIENT
  Age: 83 Year
  Sex: Female

DRUGS (5)
  1. CIPROFLOXACIN [Suspect]
     Route: 048
     Dates: start: 20110801, end: 20110801
  2. ASPIRIN [Concomitant]
     Route: 048
  3. PREDNISONE [Concomitant]
     Route: 048
  4. CIPROFLOXACIN [Suspect]
     Indication: INFECTION
     Route: 048
     Dates: start: 20110801, end: 20110801
  5. SYNTHROID [Concomitant]
     Route: 048

REACTIONS (3)
  - HYPOAESTHESIA [None]
  - PAIN IN EXTREMITY [None]
  - GAIT DISTURBANCE [None]
